FAERS Safety Report 5125970-8 (Version None)
Quarter: 2006Q4

REPORT INFORMATION
  Report Type: 
  Country: None (occurrence: None)
  Receive Date: 20061010
  Receipt Date: 20061010
  Transmission Date: 20070319
  Serious: No
  Sender: FDA-Public Use
  Company Number: None

PATIENT
  Sex: Male

DRUGS (2)
  1. OXY IR CAPS - PURDUE [Suspect]
     Indication: ACCIDENT
     Dosage: 40 MG TWICE DAILY ORALLY
     Route: 048
  2. OXY IR CAPS - PURDUE [Suspect]
     Indication: BACK PAIN
     Dosage: 40 MG TWICE DAILY ORALLY
     Route: 048

REACTIONS (2)
  - DRUG INEFFECTIVE [None]
  - PHARMACEUTICAL PRODUCT COMPLAINT [None]
